FAERS Safety Report 25984230 (Version 1)
Quarter: 2025Q4

REPORT INFORMATION
  Report Type: Spontaneous
  Country: US (occurrence: None)
  Receive Date: 20251030
  Receipt Date: 20251030
  Transmission Date: 20260118
  Serious: No
  Sender: FDA-CTU
  Company Number: None

PATIENT
  Age: 79 Year
  Sex: Male
  Weight: 29.025 kg

DRUGS (1)
  1. ERLEADA [Suspect]
     Active Substance: APALUTAMIDE
     Indication: Prostate cancer
     Dosage: 240 MG DAILY ORAL
     Route: 048

REACTIONS (3)
  - Pruritus [None]
  - Burning sensation [None]
  - Drug intolerance [None]

NARRATIVE: CASE EVENT DATE: 20251014
